FAERS Safety Report 13371478 (Version 2)
Quarter: 2017Q2

REPORT INFORMATION
  Report Type: Report from Study
  Country: None (occurrence: DE)
  Receive Date: 20170324
  Receipt Date: 20170622
  Transmission Date: 20170830
  Serious: Yes (Hospitalization)
  Sender: FDA-Public Use
  Company Number: DE-ABBVIE-17P-062-1914925-00

PATIENT
  Age: 41 Year
  Sex: Female

DRUGS (2)
  1. DUODOPA [Suspect]
     Active Substance: CARBIDOPA\LEVODOPA
     Dosage: MD: 13.0ML , CRD: 4.9ML/H , CRN 3.2 ML/H, ED: 1.0ML
     Route: 050
     Dates: start: 2017
  2. DUODOPA [Suspect]
     Active Substance: CARBIDOPA\LEVODOPA
     Indication: PARKINSON^S DISEASE
     Dosage: MD: 13.0ML , CRD: 4.9ML/H , ED: 1.0ML
     Route: 050
     Dates: start: 20090616, end: 201703

REACTIONS (3)
  - Constipation [Recovered/Resolved]
  - Discoloured vomit [Recovered/Resolved]
  - Acute abdomen [Recovered/Resolved]

NARRATIVE: CASE EVENT DATE: 20170316
